FAERS Safety Report 24367530 (Version 1)
Quarter: 2024Q3

REPORT INFORMATION
  Report Type: Spontaneous
  Country: ES (occurrence: ES)
  Receive Date: 20240926
  Receipt Date: 20240926
  Transmission Date: 20241016
  Serious: Yes (Hospitalization)
  Sender: ABBVIE
  Company Number: None

PATIENT
  Age: 15 Year
  Sex: Female
  Weight: 78 kg

DRUGS (6)
  1. ADALIMUMAB [Suspect]
     Active Substance: ADALIMUMAB
     Indication: Hidradenitis
     Dosage: 2 PRE-FILLED SYRINGE EVERY 15 DAYS, LAST ADMIN DATE - 2024, ADALIMUMAB (2906A)
     Route: 058
     Dates: start: 20240823
  2. ALDACTONE [Concomitant]
     Active Substance: SPIRONOLACTONE
     Indication: Hidradenitis
     Dosage: 25.0 MG BREASKFAST,?25 MG, 50 TABLETS
     Route: 048
     Dates: start: 20240522
  3. EPIDUO [Concomitant]
     Active Substance: ADAPALENE\BENZOYL PEROXIDE
     Indication: Acne
     Dosage: 1.0 APLICATION EVERY/24 H, FORTE 3 MG/G + 25 MG/G GEL, 1 MULTIDOSE CONTAINER OF 45 G
     Dates: start: 20240720
  4. Sibilla diario [Concomitant]
     Indication: Hidradenitis
     Dosage: 1 TABLET EVERY 24 HOUR, DAILY 2 MG/0.03 MG FILM-COATED TABLETS GENERIC PHARMACEUTICAL SPECIALTY, ...
     Route: 048
     Dates: start: 20240522
  5. OMEPRAZOLE [Concomitant]
     Active Substance: OMEPRAZOLE
     Indication: Abdominal pain
     Dosage: 40 MG HARD GASTRORE-RESISTANT CAPSULES, 56 CAPSULES (BOTTLE), 40 MG/DAY
     Route: 048
     Dates: start: 20220301
  6. Nolotil [Concomitant]
     Indication: Abdominal pain
     Dosage: 575.0 MG BREAKFAST-LUNCH- DINNER, 575 MG HARD CAPSULES, 20 CAPSULES
     Route: 048
     Dates: start: 20220228

REACTIONS (2)
  - Drug interaction [Recovering/Resolving]
  - Pulmonary embolism [Recovering/Resolving]

NARRATIVE: CASE EVENT DATE: 20240909
